FAERS Safety Report 5781231-5 (Version None)
Quarter: 2008Q2

REPORT INFORMATION
  Report Type: 
  Country: None (occurrence: None)
  Receive Date: 20080618
  Receipt Date: 20080521
  Transmission Date: 20081010
  Serious: Yes (Hospitalization)
  Sender: FDA-Public Use
  Company Number: 2008AL004594

PATIENT
  Age: 89 Year
  Sex: Female
  Weight: 53.5244 kg

DRUGS (10)
  1. DIGOXIN [Suspect]
     Indication: HEART RATE IRREGULAR
     Dosage: 0.125MG DAILY PO
     Route: 048
     Dates: start: 20080414, end: 20080613
  2. PANTOPRAZOLE SODIUM [Concomitant]
  3. WARFARIN SODIUM [Concomitant]
  4. PROPRANOLOL [Concomitant]
  5. EVISTA [Concomitant]
  6. EXELON [Concomitant]
  7. POTASSIUM CHLORIDE [Concomitant]
  8. SINEMET [Concomitant]
  9. DIAZEPAM [Concomitant]
  10. MEGESTROL ACETATE [Concomitant]

REACTIONS (4)
  - BALANCE DISORDER [None]
  - BLOOD PRESSURE DECREASED [None]
  - DIZZINESS [None]
  - NAUSEA [None]
